FAERS Safety Report 23885936 (Version 3)
Quarter: 2024Q2

REPORT INFORMATION
  Report Type: Spontaneous
  Country: FR (occurrence: FR)
  Receive Date: 20240522
  Receipt Date: 20240604
  Transmission Date: 20240716
  Serious: Yes (Hospitalization)
  Sender: FDA-Public Use
  Company Number: FR-AMERICAN REGENT INC-2024001880

PATIENT
  Age: 40 Year
  Sex: Female
  Weight: 90 kg

DRUGS (2)
  1. FERINJECT [Suspect]
     Active Substance: FERRIC CARBOXYMALTOSE
     Indication: Anaemia
     Dosage: 1000 (UNIT UNKNOWN)
     Dates: start: 20221024, end: 20221024
  2. FERINJECT [Suspect]
     Active Substance: FERRIC CARBOXYMALTOSE
     Dosage: 1000 (UNIT UNKNOWN)
     Dates: start: 2022, end: 2022

REACTIONS (3)
  - Myomectomy [Unknown]
  - Hysterotomy [Unknown]
  - Off label use [Unknown]

NARRATIVE: CASE EVENT DATE: 20221024
